FAERS Safety Report 8512513-1 (Version None)
Quarter: 2012Q3

REPORT INFORMATION
  Report Type: 
  Country: None (occurrence: None)
  Receive Date: 20120716
  Receipt Date: 20120706
  Transmission Date: 20120928
  Serious: Yes (Other)
  Sender: FDA-Public Use
  Company Number: GB-GLAXOSMITHKLINE-B0813108A

PATIENT
  Age: 68 Year
  Sex: Male

DRUGS (9)
  1. OMEPRAZOLE [Concomitant]
     Indication: GASTRIC DISORDER
     Dosage: 20MG PER DAY
     Route: 048
     Dates: start: 20120501
  2. MS CONTIN [Concomitant]
     Indication: PAIN
     Dosage: 80MG PER DAY
     Route: 048
     Dates: start: 20120501
  3. SENNA-MINT WAF [Concomitant]
     Indication: CONSTIPATION
     Dosage: 2IUAX PER DAY
     Route: 048
     Dates: start: 20120501
  4. MOVIPREP [Concomitant]
     Indication: CONSTIPATION
     Dosage: 2IUAX PER DAY
     Route: 048
     Dates: start: 20120501
  5. ORAMORPH SR [Concomitant]
     Indication: PAIN
     Route: 048
     Dates: start: 20120501
  6. DEXAMETHASONE [Concomitant]
     Indication: METASTASES TO CENTRAL NERVOUS SYSTEM
     Route: 048
     Dates: start: 20120501
  7. ONDANSETRON [Suspect]
     Indication: NAUSEA
     Route: 048
     Dates: start: 20120618, end: 20120618
  8. DICLOFENAC [Concomitant]
     Indication: PAIN
     Dosage: 150MG PER DAY
     Route: 048
     Dates: start: 20120501
  9. CYCLIZINE [Concomitant]
     Indication: NAUSEA
     Dosage: 150MG PER DAY
     Route: 048
     Dates: start: 20120501

REACTIONS (4)
  - AGITATION [None]
  - RESTLESSNESS [None]
  - MUSCLE SPASMS [None]
  - TREMOR [None]
